FAERS Safety Report 11536603 (Version 2)
Quarter: 2015Q3

REPORT INFORMATION
  Report Type: Spontaneous
  Country: US (occurrence: US)
  Receive Date: 20150922
  Receipt Date: 20150924
  Transmission Date: 20151125
  Serious: Yes (Hospitalization)
  Sender: FDA-Public Use
  Company Number: US-PFIZER INC-2015303603

PATIENT
  Sex: Female

DRUGS (1)
  1. IBUPROFEN. [Suspect]
     Active Substance: IBUPROFEN
     Indication: PYREXIA
     Dosage: (MAXIMAL DOSE: 752 MG)

REACTIONS (4)
  - Vulval oedema [Unknown]
  - Hypersensitivity [Recovered/Resolved]
  - Histamine level increased [Unknown]
  - Urticaria [Unknown]
